FAERS Safety Report 19821001 (Version 1)
Quarter: 2021Q3

REPORT INFORMATION
  Report Type: Spontaneous
  Country: US (occurrence: US)
  Receive Date: 20210913
  Receipt Date: 20210913
  Transmission Date: 20211014
  Serious: Yes (Hospitalization)
  Sender: FDA-Public Use
  Company Number: US-MYLANLABS-2021M1059036

PATIENT
  Age: 23 Year
  Sex: Female

DRUGS (8)
  1. TOCILIZUMAB. [Suspect]
     Active Substance: TOCILIZUMAB
     Indication: CYTOKINE RELEASE SYNDROME
     Dosage: 8 MILLIGRAM/KILOGRAM, QD, THREE DOSES
     Route: 042
  2. TISAGENLECLEUCEL?T [Concomitant]
     Active Substance: TISAGENLECLEUCEL
     Indication: PHILADELPHIA CHROMOSOME NEGATIVE
  3. DEXAMETHASONE SODIUM PHOSPHATE INJECTION USP [Suspect]
     Active Substance: DEXAMETHASONE SODIUM PHOSPHATE
     Indication: PYREXIA
     Dosage: 10 MILLIGRAM, QD
     Route: 042
  4. PARACETAMOL [Suspect]
     Active Substance: ACETAMINOPHEN
     Indication: PYREXIA
     Dosage: UNK
     Route: 065
  5. ANAKINRA [Concomitant]
     Active Substance: ANAKINRA
     Indication: CYTOKINE RELEASE SYNDROME
     Dosage: 100 MILLIGRAM, QD
     Route: 058
  6. SILTUXIMAB [Suspect]
     Active Substance: SILTUXIMAB
     Indication: PYREXIA
     Dosage: 11 MILLIGRAM/KILOGRAM, QD
     Route: 042
  7. DEXAMETHASONE SODIUM PHOSPHATE INJECTION USP [Suspect]
     Active Substance: DEXAMETHASONE SODIUM PHOSPHATE
     Indication: CYTOKINE RELEASE SYNDROME
     Dosage: 20 MILLIGRAM, Q6H
     Route: 042
  8. TISAGENLECLEUCEL?T [Concomitant]
     Active Substance: TISAGENLECLEUCEL
     Indication: ACUTE LYMPHOCYTIC LEUKAEMIA RECURRENT
     Dosage: UNK

REACTIONS (1)
  - Drug ineffective [Unknown]
